FAERS Safety Report 9456139 (Version 2)
Quarter: 2014Q2

REPORT INFORMATION
  Report Type: Spontaneous
  Country: SE (occurrence: SE)
  Receive Date: 20130813
  Receipt Date: 20140516
  Transmission Date: 20141212
  Serious: Yes (Other)
  Sender: FDA-Public Use
  Company Number: SE-WATSON-2013-14519

PATIENT
  Sex: Male

DRUGS (1)
  1. SIMIDON [Suspect]
     Indication: PRODUCT USED FOR UNKNOWN INDICATION
     Dosage: UNK, UNKNOWN
     Route: 065

REACTIONS (4)
  - Erectile dysfunction [Recovering/Resolving]
  - Myalgia [Recovering/Resolving]
  - Mobility decreased [Recovering/Resolving]
  - Withdrawal syndrome [Recovering/Resolving]
